FAERS Safety Report 8172545 (Version 4)
Quarter: 2012Q4

REPORT INFORMATION
  Report Type: Report from Study
  Country: JP (occurrence: JP)
  Receive Date: 20111007
  Receipt Date: 20121227
  Transmission Date: 20130627
  Serious: Yes (Other)
  Sender: FDA-Public Use
  Company Number: JP-CELGENEUS-087-21880-11093554

PATIENT
  Age: 68 Year
  Sex: Female

DRUGS (15)
  1. REVLIMID [Suspect]
     Indication: MULTIPLE MYELOMA
     Dosage: 10 Milligram
     Route: 048
     Dates: start: 20101006, end: 20101026
  2. REVLIMID [Suspect]
     Dosage: 10 Milligram
     Route: 048
     Dates: start: 20101123, end: 20101129
  3. REVLIMID [Suspect]
     Dosage: 10 Milligram
     Route: 048
     Dates: start: 20101206, end: 20101226
  4. REVLIMID [Suspect]
     Dosage: 10 Milligram
     Route: 048
     Dates: start: 20110118, end: 20110131
  5. REVLIMID [Suspect]
     Dosage: 10 Milligram
     Route: 048
     Dates: start: 20110215, end: 20110228
  6. REVLIMID [Suspect]
     Dosage: 10 Milligram
     Route: 048
     Dates: start: 20110315, end: 20110328
  7. LENADEX [Suspect]
     Indication: MULTIPLE MYELOMA
     Dosage: 12 Milligram
     Route: 048
     Dates: start: 20101006, end: 20101008
  8. LENADEX [Suspect]
     Dosage: 12 Milligram
     Route: 048
     Dates: start: 20101014, end: 20101016
  9. LENADEX [Suspect]
     Dosage: 12 Milligram
     Route: 048
     Dates: start: 20101020, end: 20101022
  10. LENADEX [Suspect]
     Dosage: 12 Milligram
     Route: 048
     Dates: start: 20101123, end: 20101125
  11. LENADEX [Suspect]
     Dosage: 12 Milligram
     Route: 048
     Dates: start: 20101206, end: 20101226
  12. LENADEX [Suspect]
     Dosage: 12 Milligram
     Route: 048
     Dates: start: 20110118, end: 20110120
  13. LENADEX [Suspect]
     Dosage: 12 Milligram
     Route: 048
     Dates: start: 20110124, end: 20110126
  14. BAKTAR [Concomitant]
     Indication: PROPHYLAXIS
     Dosage: 1 Gram
     Route: 048
     Dates: start: 20101123, end: 20101129
  15. BAKTAR [Concomitant]
     Dosage: 1 Gram
     Route: 048
     Dates: start: 20110118, end: 20110131

REACTIONS (3)
  - Stomatitis [Recovering/Resolving]
  - Thrombocytopenia [Recovering/Resolving]
  - Dyspnoea [Recovering/Resolving]
